FAERS Safety Report 5865006-4 (Version None)
Quarter: 2008Q3

REPORT INFORMATION
  Report Type: 
  Country: None (occurrence: None)
  Receive Date: 20080829
  Receipt Date: 20080821
  Transmission Date: 20090109
  Serious: Yes (Hospitalization, Disabling)
  Sender: FDA-Public Use
  Company Number: A0685357A

PATIENT
  Age: 52 Year
  Sex: Male
  Weight: 122.7 kg

DRUGS (4)
  1. AVANDIA [Suspect]
     Dosage: 4MG TWICE PER DAY
     Route: 048
     Dates: start: 19990101, end: 20061101
  2. LANTUS [Concomitant]
     Dates: start: 20030101, end: 20061101
  3. TOPROL-XL [Concomitant]
     Dates: start: 20050201, end: 20061101
  4. ATORVASTATIN [Concomitant]
     Dates: start: 20050201, end: 20061101

REACTIONS (6)
  - ANXIETY [None]
  - CARDIAC DISORDER [None]
  - HEART INJURY [None]
  - INJURY [None]
  - MYOCARDIAL INFARCTION [None]
  - PAIN [None]
